FAERS Safety Report 6616517-5 (Version None)
Quarter: 2010Q1

REPORT INFORMATION
  Report Type: 
  Country: None (occurrence: None)
  Receive Date: 20100305
  Receipt Date: 20100111
  Transmission Date: 20100710
  Serious: Yes (Other)
  Sender: FDA-Public Use
  Company Number: CHPA2010US00930

PATIENT
  Age: 41 Year
  Sex: Female
  Weight: 51.701 kg

DRUGS (1)
  1. THERAFLU NIGHTTIME SEVERE COLD + COUGH (NCH) [Suspect]
     Indication: NASOPHARYNGITIS
     Dosage: 2 TO 3 PACKETS, IN A DAY
     Route: 048
     Dates: start: 20100101, end: 20100104

REACTIONS (6)
  - ABDOMINAL PAIN UPPER [None]
  - AGEUSIA [None]
  - DIARRHOEA [None]
  - DYSGEUSIA [None]
  - LIVER DISORDER [None]
  - VOMITING [None]
